FAERS Safety Report 6596672-6 (Version None)
Quarter: 2010Q1

REPORT INFORMATION
  Report Type: 
  Country: None (occurrence: None)
  Receive Date: 20100223
  Receipt Date: 20100212
  Transmission Date: 20100710
  Serious: Yes (Hospitalization)
  Sender: FDA-Public Use
  Company Number: GB-BAYER-200942821GPV

PATIENT
  Age: 82 Year
  Sex: Male

DRUGS (13)
  1. SORAFENIB [Suspect]
     Indication: HEPATIC NEOPLASM MALIGNANT
     Dosage: UNIT DOSE: 400 MG
     Route: 048
     Dates: start: 20091120, end: 20091210
  2. ERLOTINIB [Suspect]
     Indication: HEPATIC NEOPLASM MALIGNANT
     Route: 048
     Dates: start: 20091120, end: 20091210
  3. TAZOCIN [Concomitant]
     Indication: DRUG USE FOR UNKNOWN INDICATION
     Route: 042
     Dates: start: 20091213
  4. FLUCONAZOLE [Concomitant]
     Indication: CANDIDIASIS
     Route: 048
     Dates: start: 20091214, end: 20091220
  5. NA CL 0.45% [Concomitant]
     Indication: DRUG USE FOR UNKNOWN INDICATION
     Route: 042
     Dates: start: 20091213
  6. ALLOPURINOL [Concomitant]
     Indication: GOUT
     Dates: start: 19990101
  7. ASPIRIN [Concomitant]
     Indication: CARDIOVASCULAR EVENT PROPHYLAXIS
     Dates: start: 20070101
  8. CANESARTAN [Concomitant]
     Indication: HYPERTENSION
     Dates: start: 20060101
  9. BISOPROLOL [Concomitant]
     Indication: ATRIAL FIBRILLATION
     Dates: start: 20090101
  10. SIMVASTATIN [Concomitant]
     Indication: HYPERCHOLESTEROLAEMIA
     Dates: start: 20080101
  11. PARACETAMOL [Concomitant]
     Indication: BACK PAIN
     Dates: start: 20090101
  12. FUCIDIN H OINTMENT [Concomitant]
     Indication: DRUG USE FOR UNKNOWN INDICATION
     Route: 061
     Dates: start: 20091221
  13. DOUBLE BASE [Concomitant]
     Indication: DRY SKIN
     Route: 061
     Dates: start: 20091216

REACTIONS (4)
  - DIARRHOEA [None]
  - LETHARGY [None]
  - MOUTH ULCERATION [None]
  - RASH [None]
